FAERS Safety Report 23096856 (Version 1)
Quarter: 2023Q4

REPORT INFORMATION
  Report Type: Spontaneous
  Country: US (occurrence: US)
  Receive Date: 20231023
  Receipt Date: 20231023
  Transmission Date: 20240110
  Serious: No
  Sender: FDA-Public Use
  Company Number: US-TORRENT-00012934

PATIENT
  Age: 82 Year
  Sex: Female

DRUGS (2)
  1. ARIPIPRAZOLE [Suspect]
     Active Substance: ARIPIPRAZOLE
     Indication: Product used for unknown indication
     Dosage: ONE TABLET EVERY NIGHT
     Route: 065
     Dates: start: 20231008
  2. LOSARTAN [Concomitant]
     Active Substance: LOSARTAN
     Indication: Hypertension
     Dosage: UNKNOWN
     Route: 065

REACTIONS (4)
  - Insomnia [Unknown]
  - Fatigue [Unknown]
  - Nightmare [Unknown]
  - Obesity [Unknown]
